FAERS Safety Report 9356397 (Version 1)
Quarter: 2013Q2

REPORT INFORMATION
  Report Type: Spontaneous
  Country: US (occurrence: None)
  Receive Date: 20130614
  Receipt Date: 20130614
  Transmission Date: 20140414
  Serious: Yes (Other)
  Sender: FDA-Public Use
  Company Number: E2B_00000926

PATIENT
  Age: 45 Year
  Sex: Female

DRUGS (4)
  1. LISINOPRIL AND HYDROCHLOROTHIAZIDE [Suspect]
     Indication: HYPERTENSION
     Dosage: (1 DOSAGE FORMS, 1 IN 1 D)
     Route: 048
  2. METFORMIN [Concomitant]
  3. DIVALPROEX SODIUM [Concomitant]
  4. IBUPROFEN [Concomitant]

REACTIONS (3)
  - Coeliac disease [None]
  - Nausea [None]
  - Vomiting [None]
